FAERS Safety Report 18581580 (Version 3)
Quarter: 2021Q2

REPORT INFORMATION
  Report Type: Report from Study
  Country: US (occurrence: US)
  Receive Date: 20201204
  Receipt Date: 20210610
  Transmission Date: 20210717
  Serious: Yes (Hospitalization, Other)
  Sender: FDA-Public Use
  Company Number: US-TAKEDA-2020TUS052800

PATIENT
  Sex: Male
  Weight: 24 kg

DRUGS (6)
  1. TEDUGLUTIDE [Suspect]
     Active Substance: TEDUGLUTIDE
     Indication: SHORT-BOWEL SYNDROME
     Dosage: 0.056 MILLILITER, QD
     Route: 058
     Dates: start: 20200903
  2. TEDUGLUTIDE [Suspect]
     Active Substance: TEDUGLUTIDE
     Indication: SHORT-BOWEL SYNDROME
     Dosage: 0.056 MILLILITER, QD
     Route: 058
     Dates: start: 20200903
  3. TEDUGLUTIDE [Suspect]
     Active Substance: TEDUGLUTIDE
     Indication: SHORT-BOWEL SYNDROME
     Dosage: 0.056 MILLILITER, QD
     Route: 058
     Dates: start: 20200903
  4. TEDUGLUTIDE [Suspect]
     Active Substance: TEDUGLUTIDE
     Indication: SHORT-BOWEL SYNDROME
     Dosage: 0.056 MILLILITER, QD
     Route: 058
     Dates: start: 20200903
  5. POWDERED TALC [Concomitant]
     Indication: PRODUCT USED FOR UNKNOWN INDICATION
     Dosage: UNK
     Route: 065
  6. DUOCAL [Concomitant]

REACTIONS (4)
  - Lyme disease [Unknown]
  - Vomiting [Unknown]
  - Hospitalisation [Unknown]
  - Weight increased [Unknown]
